FAERS Safety Report 10611048 (Version 3)
Quarter: 2014Q4

REPORT INFORMATION
  Report Type: Spontaneous
  Country: AU (occurrence: AU)
  Receive Date: 20141126
  Receipt Date: 20141226
  Transmission Date: 20150529
  Serious: Yes (Other)
  Sender: FDA-Public Use
  Company Number: AU-BRISTOL-MYERS SQUIBB COMPANY-21619606

PATIENT
  Age: 32 Year
  Sex: Female

DRUGS (1)
  1. YERVOY [Suspect]
     Active Substance: IPILIMUMAB
     Indication: METASTATIC MALIGNANT MELANOMA
     Dosage: Q3 (4 DOSES)
     Route: 065
     Dates: start: 201303

REACTIONS (2)
  - Hyperthyroidism [Unknown]
  - Neutropenia [Recovered/Resolved]
